FAERS Safety Report 10256494 (Version 2)
Quarter: 2014Q2

REPORT INFORMATION
  Report Type: Spontaneous
  Country: US (occurrence: US)
  Receive Date: 20140624
  Receipt Date: 20140624
  Transmission Date: 20141212
  Serious: No
  Sender: FDA-Public Use
  Company Number: US-ZOGENIX, INC.-2012ZX000215

PATIENT
  Age: 57 Year
  Sex: Female
  Weight: 52.21 kg

DRUGS (19)
  1. SUMAVEL DOSEPRO [Suspect]
     Indication: MIGRAINE
  2. SUMAVEL DOSEPRO [Suspect]
     Dates: start: 20121025, end: 20121025
  3. PREDNISONE [Concomitant]
     Indication: PRODUCT USED FOR UNKNOWN INDICATION
     Route: 048
  4. ZOCOR [Concomitant]
     Indication: BLOOD CHOLESTEROL
     Route: 048
  5. PROLIA [Concomitant]
     Indication: OSTEOPOROSIS
  6. TRAZODONE [Concomitant]
     Indication: MIGRAINE
     Route: 048
  7. NYSTATIN [Concomitant]
     Indication: PRODUCT USED FOR UNKNOWN INDICATION
  8. CARAFATE [Concomitant]
     Indication: PRODUCT USED FOR UNKNOWN INDICATION
  9. XANAX [Concomitant]
     Indication: ANXIETY
     Route: 048
  10. IMITREX [Concomitant]
     Indication: MIGRAINE
  11. BOTOX [Concomitant]
     Indication: MIGRAINE
  12. TOPAMAX [Concomitant]
     Indication: MIGRAINE
     Route: 048
  13. CYMBALTA [Concomitant]
     Indication: DEPRESSION
     Route: 048
  14. OS-CAL [Concomitant]
     Indication: VITAMIN SUPPLEMENTATION
     Route: 048
  15. HYDROCODONE/APAP [Concomitant]
     Indication: PAIN
     Route: 048
  16. KLOR-CON [Concomitant]
     Indication: MINERAL SUPPLEMENTATION
  17. CALTRATE [Concomitant]
     Indication: PRODUCT USED FOR UNKNOWN INDICATION
     Route: 048
  18. OMEPRAZOLE [Concomitant]
     Indication: PRODUCT USED FOR UNKNOWN INDICATION
     Route: 048
  19. CALTRATEL [Concomitant]
     Indication: VITAMIN SUPPLEMENTATION
     Route: 048

REACTIONS (6)
  - Injection site bruising [Recovering/Resolving]
  - Injection site pain [Recovering/Resolving]
  - Injection site swelling [Recovered/Resolved]
  - Injection site haemorrhage [Recovered/Resolved]
  - Device malfunction [Recovered/Resolved]
  - Drug administered at inappropriate site [Recovered/Resolved]
